FAERS Safety Report 25009016 (Version 1)
Quarter: 2025Q1

REPORT INFORMATION
  Report Type: Report from Study
  Country: DE (occurrence: DE)
  Receive Date: 20250225
  Receipt Date: 20250225
  Transmission Date: 20250408
  Serious: Yes (Death)
  Sender: AUROBINDO
  Company Number: DE-GERMAN-DEU/2025/02/001878

PATIENT
  Age: 70 Year
  Sex: Female

DRUGS (1)
  1. LENALIDOMIDE [Suspect]
     Active Substance: LENALIDOMIDE
     Indication: Xanthogranuloma
     Route: 065

REACTIONS (2)
  - Disease progression [Fatal]
  - Drug ineffective for unapproved indication [Fatal]
